FAERS Safety Report 8182385-6 (Version None)
Quarter: 2012Q1

REPORT INFORMATION
  Report Type: 
  Country: None (occurrence: None)
  Receive Date: 20120303
  Receipt Date: 20120213
  Transmission Date: 20120608
  Serious: No
  Sender: FDA-Public Use
  Company Number: US-ROXANE LABORATORIES, INC.-2012-RO-00647RO

PATIENT
  Sex: Female

DRUGS (1)
  1. FLUTICASONE PROPIONATE [Suspect]
     Indication: MIDDLE EAR EFFUSION
     Route: 045

REACTIONS (2)
  - EPISTAXIS [None]
  - DRUG INEFFECTIVE FOR UNAPPROVED INDICATION [None]
